FAERS Safety Report 21377620 (Version 1)
Quarter: 2022Q3

REPORT INFORMATION
  Report Type: Spontaneous
  Country: DE (occurrence: DE)
  Receive Date: 20220926
  Receipt Date: 20220926
  Transmission Date: 20221026
  Serious: Yes (Hospitalization, Other)
  Sender: FDA-Public Use
  Company Number: None

PATIENT
  Age: 84 Year
  Sex: Female

DRUGS (2)
  1. EDOXABAN [Suspect]
     Active Substance: EDOXABAN
     Indication: Product used for unknown indication
     Dosage: UNK, SCHEMA
     Route: 065
  2. COMIRNATY [Suspect]
     Active Substance: TOZINAMERAN
     Indication: Product used for unknown indication
     Dosage: UNK, SCHEMA, LIPOSOMAL
     Route: 065
     Dates: start: 20210402

REACTIONS (8)
  - Atrial fibrillation [Unknown]
  - Renal impairment [Unknown]
  - Hypotension [Unknown]
  - Loss of consciousness [Unknown]
  - Acute respiratory failure [Unknown]
  - Electrocardiogram abnormal [Unknown]
  - Hyperglycaemia [Unknown]
  - Haemorrhage intracranial [Unknown]
